FAERS Safety Report 10089413 (Version 2)
Quarter: 2014Q3

REPORT INFORMATION
  Report Type: Spontaneous
  Country: JP (occurrence: JP)
  Receive Date: 20140421
  Receipt Date: 20140731
  Transmission Date: 20150326
  Serious: Yes (Other)
  Sender: FDA-Public Use
  Company Number: JP-B.I. PHARMACEUTICALS,INC./RIDGEFIELD-2014-BI-17849NB

PATIENT
  Age: 83 Year
  Sex: Male
  Weight: 61.8 kg

DRUGS (2)
  1. PRAZAXA [Suspect]
     Active Substance: DABIGATRAN ETEXILATE MESYLATE
     Indication: PRODUCT USED FOR UNKNOWN INDICATION
     Dosage: 220 MG
     Route: 048
     Dates: start: 201103, end: 20121211
  2. PRAZAXA [Suspect]
     Active Substance: DABIGATRAN ETEXILATE MESYLATE
     Dosage: 150 MG
     Route: 048
     Dates: start: 20121212

REACTIONS (3)
  - White blood cell count decreased [Unknown]
  - Anaemia [Unknown]
  - Platelet count decreased [Unknown]

NARRATIVE: CASE EVENT DATE: 20140210
